FAERS Safety Report 7971674-3 (Version None)
Quarter: 2011Q4

REPORT INFORMATION
  Report Type: 
  Country: None (occurrence: None)
  Receive Date: 20111212
  Receipt Date: 20111208
  Transmission Date: 20120403
  Serious: Yes (Other)
  Sender: FDA-Public Use
  Company Number: US-PFIZER INC-2011299957

PATIENT
  Age: 54 Year
  Sex: Male

DRUGS (3)
  1. NEURONTIN [Suspect]
     Indication: CONVULSION
     Dosage: UNK
  2. KEPPRA [Suspect]
     Dosage: UNK
  3. DILANTIN-125 [Suspect]
     Indication: CONVULSION
     Dosage: UNK

REACTIONS (2)
  - CONVULSION [None]
  - DRUG INEFFECTIVE [None]
